FAERS Safety Report 8098515-0 (Version None)
Quarter: 2012Q1

REPORT INFORMATION
  Report Type: 
  Country: None (occurrence: None)
  Receive Date: 20120129
  Receipt Date: 20110913
  Transmission Date: 20120608
  Serious: No
  Sender: FDA-Public Use
  Company Number: US-ABBOTT-11P-163-0854726-00

PATIENT
  Age: 44 Year
  Sex: Female

DRUGS (7)
  1. VICODIN [Concomitant]
     Indication: PAIN
     Dosage: 5/500, PRN
  2. M.V.I. [Concomitant]
     Indication: PRODUCT USED FOR UNKNOWN INDICATION
  3. STEROID [Suspect]
     Indication: PAIN
     Route: 050
     Dates: end: 20110912
  4. FISH OIL [Concomitant]
     Indication: PRODUCT USED FOR UNKNOWN INDICATION
  5. HUMIRA [Suspect]
     Indication: PSORIASIS
     Dates: start: 20110901
  6. FLONASE [Concomitant]
     Indication: SEASONAL ALLERGY
     Route: 045
  7. PRAVASTATIN [Concomitant]
     Indication: BLOOD CHOLESTEROL INCREASED

REACTIONS (1)
  - DRUG EFFECT DECREASED [None]
